FAERS Safety Report 8854303 (Version 1)
Quarter: 2012Q4

REPORT INFORMATION
  Report Type: 
  Country: CO (occurrence: CO)
  Receive Date: 20121023
  Receipt Date: 20121023
  Transmission Date: 20130627
  Serious: Yes (Other)
  Sender: FDA-Public Use
  Company Number: CO-PFIZER INC-2012263906

PATIENT
  Age: 51 Year
  Sex: Male

DRUGS (11)
  1. LYRICA [Suspect]
     Indication: FIBROMYALGIA
     Dosage: 150 mg, 1x/day
     Route: 048
     Dates: start: 2006, end: 201207
  2. LYRICA [Suspect]
     Indication: SCIATIC NERVE INJURY
     Dosage: 300 mg, 1x/day
     Route: 048
     Dates: start: 201207
  3. ESOMEPRAZOLE [Concomitant]
     Indication: GASTRIC ULCER
     Dosage: 20 mg, 2x/day
     Route: 048
     Dates: start: 1992
  4. TRAMADOL [Concomitant]
     Indication: FIBROMYALGIA
     Dosage: 10 mg, 2x/day
     Route: 048
     Dates: start: 2006
  5. VALPROIC ACID [Concomitant]
     Indication: HEADACHE
     Dosage: 250 mg, 2x/day
     Route: 048
     Dates: start: 2005
  6. FOLIC ACID [Concomitant]
     Indication: PROPHYLAXIS
     Dosage: 1 mg, 1x/day
     Route: 048
     Dates: start: 1990
  7. DITOPAX TABLETS [Concomitant]
     Indication: PROPHYLAXIS
     Dosage: 3 tablets, 1x/day
     Route: 065
     Dates: start: 2002
  8. LORATADINE [Concomitant]
     Indication: PROPHYLAXIS
     Dosage: UNK
     Route: 065
     Dates: start: 1997
  9. TRAZODONE [Concomitant]
     Indication: SLEEP DISORDER
     Dosage: 50 mg, 1x/day
     Route: 048
     Dates: start: 2005
  10. DOLEX [Concomitant]
     Indication: FIBROMYALGIA
     Dosage: 6 tablets of 650 mg, 1x/day
     Dates: start: 2009
  11. DULOXETINE [Concomitant]
     Indication: FIBROMYALGIA
     Dosage: 60 mg, 1x/day
     Route: 048
     Dates: start: 2010

REACTIONS (1)
  - Sciatic nerve injury [Not Recovered/Not Resolved]
